FAERS Safety Report 16306463 (Version 1)
Quarter: 2019Q2

REPORT INFORMATION
  Report Type: Spontaneous
  Country: US (occurrence: US)
  Receive Date: 20190513
  Receipt Date: 20190513
  Transmission Date: 20190711
  Serious: No
  Sender: FDA-Public Use
  Company Number: US-PFIZER INC-2019200211

PATIENT
  Age: 69 Year
  Sex: Female
  Weight: 72.5 kg

DRUGS (1)
  1. IBRANCE [Suspect]
     Active Substance: PALBOCICLIB
     Indication: NEOPLASM MALIGNANT
     Dosage: 100 MG, 1X/DAY
     Route: 048
     Dates: start: 201809, end: 201904

REACTIONS (1)
  - White blood cell count decreased [Unknown]
